FAERS Safety Report 23843253 (Version 2)
Quarter: 2024Q2

REPORT INFORMATION
  Report Type: Spontaneous
  Country: GB (occurrence: GB)
  Receive Date: 20240510
  Receipt Date: 20240523
  Transmission Date: 20240716
  Serious: Yes (Hospitalization, Other)
  Sender: FDA-Public Use
  Company Number: GB-VERTEX PHARMACEUTICALS-2024-007824

PATIENT
  Age: 28 Year
  Sex: Male

DRUGS (19)
  1. ELEXACAFTOR\IVACAFTOR\TEZACAFTOR [Suspect]
     Active Substance: ELEXACAFTOR\IVACAFTOR\TEZACAFTOR
     Indication: Cystic fibrosis
     Dosage: TWO TABLETS IN AM
     Route: 048
     Dates: start: 20201101, end: 20231101
  2. ELEXACAFTOR\IVACAFTOR\TEZACAFTOR [Suspect]
     Active Substance: ELEXACAFTOR\IVACAFTOR\TEZACAFTOR
     Dosage: UNK, QD
     Route: 048
     Dates: start: 20231125
  3. KALYDECO [Suspect]
     Active Substance: IVACAFTOR
     Indication: Cystic fibrosis
     Dosage: 150MG IVA
     Route: 048
     Dates: start: 20201101
  4. DOXYCYCLINE [Concomitant]
     Active Substance: DOXYCYCLINE\DOXYCYCLINE HYCLATE
     Dosage: ONCE DAILY
  5. PROMIXIN [Concomitant]
     Dosage: 1 MU TWICE DAILY
     Route: 055
  6. SALINE [Concomitant]
     Active Substance: SODIUM CHLORIDE
     Dosage: TWICE DAILY
     Route: 055
  7. LORATADINE [Concomitant]
     Active Substance: LORATADINE
     Dosage: DAILY
  8. DEOXYRIBONUCLEASE HUMAN [Concomitant]
     Dosage: ONCE DAILY
     Route: 055
  9. ALBUTEROL [Concomitant]
     Active Substance: ALBUTEROL
     Dosage: 100 MDI 2 PUFFS AS NEEDED
     Route: 055
  10. SERETIDE [Concomitant]
     Active Substance: FLUTICASONE PROPIONATE\SALMETEROL XINAFOATE
     Dosage: 125 MDI 1 PUFF TWICE DAILY
     Route: 055
  11. FLUTICASONE [Concomitant]
     Active Substance: FLUTICASONE
     Dosage: DROPS
     Route: 045
  12. NUTRIZYM 22 [Concomitant]
     Indication: Supplementation therapy
  13. CREON [Concomitant]
     Active Substance: PANCRELIPASE AMYLASE\PANCRELIPASE LIPASE\PANCRELIPASE PROTEASE
     Indication: Supplementation therapy
  14. OMEPRAZOLE [Concomitant]
     Active Substance: DONEPEZIL HYDROCHLORIDE\OMEPRAZOLE\OMEPRAZOLE MAGNESIUM
     Indication: Supplementation therapy
     Dosage: DAILY
  15. ERGOCALCIFEROL\RETINOL [Concomitant]
     Active Substance: ERGOCALCIFEROL\RETINOL
     Indication: Supplementation therapy
     Dosage: DAILY
  16. MENADIOL SODIUM PHOSPHATE [Concomitant]
     Indication: Supplementation therapy
     Dosage: DAILY
  17. CALCIUM\CHOLECALCIFEROL [Concomitant]
     Active Substance: CALCIUM\CHOLECALCIFEROL
     Indication: Supplementation therapy
     Dosage: CHEWABLE DAILY
  18. CHOLECALCIFEROL [Concomitant]
     Active Substance: CHOLECALCIFEROL
     Indication: Supplementation therapy
     Dosage: DAILY
  19. MIRTAZAPINE [Concomitant]
     Active Substance: MIRTAZAPINE
     Indication: Anxiety
     Dosage: AT NIGHT

REACTIONS (2)
  - Hepatitis E [Unknown]
  - Diabetes mellitus inadequate control [Unknown]

NARRATIVE: CASE EVENT DATE: 20230101
